FAERS Safety Report 4630667-4 (Version None)
Quarter: 2005Q2

REPORT INFORMATION
  Report Type: 
  Country: None (occurrence: None)
  Receive Date: 20050408
  Receipt Date: 20050329
  Transmission Date: 20051028
  Serious: Yes (Death)
  Sender: FDA-Public Use
  Company Number: FR-SANOFI-SYNTHELABO-A02200500846

PATIENT
  Sex: Male
  Weight: 85 kg

DRUGS (4)
  1. STILNOX [Suspect]
     Indication: SCHIZOPHRENIA
     Route: 048
     Dates: start: 20040521
  2. RISPERDAL [Suspect]
     Indication: SCHIZOPHRENIA
     Route: 048
     Dates: start: 20040521
  3. LYSANXIA [Suspect]
     Indication: SCHIZOPHRENIA
     Route: 048
     Dates: start: 20040521
  4. ZYPREXA [Concomitant]
     Indication: INTENTIONAL MISUSE
     Route: 065

REACTIONS (2)
  - COMPLETED SUICIDE [None]
  - GASTROINTESTINAL HAEMORRHAGE [None]
